FAERS Safety Report 8833942 (Version 1)
Quarter: 2012Q4

REPORT INFORMATION
  Report Type: 
  Country: US (occurrence: US)
  Receive Date: 20121010
  Receipt Date: 20121010
  Transmission Date: 20130627
  Serious: Yes (Other)
  Sender: FDA-Public Use
  Company Number: CHPA2012US020844

PATIENT
  Age: 61 Year
  Sex: Female

DRUGS (4)
  1. BENEFIBER W/ WHEAT DEXTRIN [Suspect]
     Indication: BOWEL MOVEMENT IRREGULARITY
     Dosage: UNK, sprinkle in coffee
     Route: 048
     Dates: start: 2005
  2. CENTRUM SILVER [Concomitant]
  3. CALTRATE [Concomitant]
  4. VITAMIN C [Concomitant]

REACTIONS (4)
  - Blood pressure abnormal [Unknown]
  - Off label use [Unknown]
  - Expired drug administered [Unknown]
  - Wrong technique in drug usage process [Unknown]
